FAERS Safety Report 7699934-4 (Version None)
Quarter: 2011Q3

REPORT INFORMATION
  Report Type: 
  Country: None (occurrence: None)
  Receive Date: 20110815
  Receipt Date: 20110801
  Transmission Date: 20111222
  Serious: Yes (Hospitalization)
  Sender: FDA-Public Use
  Company Number: 2011MA010836

PATIENT
  Age: 63 Year
  Sex: Male

DRUGS (4)
  1. FLUDARABINE PHOSPHATE [Suspect]
     Indication: CHEMOTHERAPY
     Dosage: 50 MG; DAY 1, 2 ,3 ; IV
     Route: 042
     Dates: start: 20110301, end: 20110405
  2. CYCLOPHOSPHAMIDE [Suspect]
     Indication: CHEMOTHERAPY
     Dosage: 500 MG; 3 DAYS; IV
     Route: 042
     Dates: start: 20110301, end: 20110405
  3. PEGFILGRASTIM [Suspect]
     Indication: CHEMOTHERAPY
     Dates: end: 20110407
  4. RITUXIMAB [Suspect]
     Indication: CHEMOTHERAPY
     Dosage: 800 MG; DAY 3; IV
     Route: 042
     Dates: start: 20110303, end: 20110405

REACTIONS (5)
  - COUGH [None]
  - OEDEMA PERIPHERAL [None]
  - FEBRILE NEUTROPENIA [None]
  - PNEUMONIA [None]
  - CARDIAC FAILURE CONGESTIVE [None]
